FAERS Safety Report 10021940 (Version 1)
Quarter: 2014Q1

REPORT INFORMATION
  Report Type: Report from Study
  Country: US (occurrence: US)
  Receive Date: 20140319
  Receipt Date: 20140319
  Transmission Date: 20141002
  Serious: Yes (Other)
  Sender: FDA-Public Use
  Company Number: US-ALEXION PHARMACEUTICALS INC.-A201202927

PATIENT
  Sex: Male

DRUGS (2)
  1. SOLIRIS [Suspect]
     Indication: PAROXYSMAL NOCTURNAL HAEMOGLOBINURIA
     Dosage: UNK
     Route: 042
  2. DESFERAL [Concomitant]
     Indication: SERUM FERRITIN INCREASED
     Dosage: UNKNOWN
     Route: 042

REACTIONS (3)
  - Transfusion [Unknown]
  - Serum ferritin increased [Not Recovered/Not Resolved]
  - Surgery [Unknown]
